FAERS Safety Report 8222556-3 (Version None)
Quarter: 2012Q1

REPORT INFORMATION
  Report Type: 
  Country: None (occurrence: None)
  Receive Date: 20120320
  Receipt Date: 20120316
  Transmission Date: 20120608
  Serious: Yes (Other)
  Sender: FDA-Public Use
  Company Number: US-B.I. PHARMACEUTICALS,INC./RIDGEFIELD-2012-BP-05115BP

PATIENT
  Sex: Female

DRUGS (2)
  1. NORVASC [Suspect]
  2. PRADAXA [Suspect]
     Indication: ATRIAL FIBRILLATION

REACTIONS (4)
  - CEREBROVASCULAR ACCIDENT [None]
  - MENTAL IMPAIRMENT [None]
  - HEADACHE [None]
  - HEMIPLEGIA [None]
